FAERS Safety Report 18203710 (Version 1)
Quarter: 2020Q3

REPORT INFORMATION
  Report Type: Spontaneous
  Country: US (occurrence: US)
  Receive Date: 20200827
  Receipt Date: 20200827
  Transmission Date: 20201103
  Serious: No
  Sender: FDA-Public Use
  Company Number: US-TARO-2020TAR01108

PATIENT

DRUGS (1)
  1. LAMISIL [Suspect]
     Active Substance: TERBINAFINE HYDROCHLORIDE
     Indication: TINEA PEDIS
     Dosage: UNK
     Route: 065
     Dates: start: 20200518, end: 20200529

REACTIONS (4)
  - Drug hypersensitivity [Unknown]
  - Swelling [Unknown]
  - Pain in extremity [Unknown]
  - Condition aggravated [Unknown]
